FAERS Safety Report 25001857 (Version 1)
Quarter: 2025Q1

REPORT INFORMATION
  Report Type: Spontaneous
  Country: SE (occurrence: SE)
  Receive Date: 20250224
  Receipt Date: 20250224
  Transmission Date: 20250409
  Serious: Yes (Hospitalization)
  Sender: ORGANON
  Company Number: None

PATIENT
  Age: 14 Year
  Sex: Female
  Weight: 44 kg

DRUGS (2)
  1. MIRTAZAPINE [Suspect]
     Active Substance: MIRTAZAPINE
     Route: 048
     Dates: start: 20240923, end: 20240923
  2. LISDEXAMFETAMINE DIMESYLATE [Suspect]
     Active Substance: LISDEXAMFETAMINE DIMESYLATE
     Route: 048
     Dates: start: 20240923, end: 20240923

REACTIONS (2)
  - Intentional self-injury [Unknown]
  - Intentional overdose [Unknown]

NARRATIVE: CASE EVENT DATE: 20240923
